FAERS Safety Report 10238351 (Version 2)
Quarter: 2014Q4

REPORT INFORMATION
  Report Type: Spontaneous
  Country: LY (occurrence: LY)
  Receive Date: 20140616
  Receipt Date: 20141002
  Transmission Date: 20150528
  Serious: Yes (Hospitalization, Other)
  Sender: FDA-Public Use
  Company Number: LY-JNJFOC-20140517379

PATIENT
  Sex: Male

DRUGS (1)
  1. TRAMADOL HYDROCHLORIDE. [Suspect]
     Active Substance: TRAMADOL HYDROCHLORIDE
     Indication: PRODUCT USED FOR UNKNOWN INDICATION
     Route: 065

REACTIONS (7)
  - Pain [Unknown]
  - Drug abuse [Unknown]
  - Drug intolerance [Unknown]
  - Feeling abnormal [Unknown]
  - Dependence [Unknown]
  - Mood swings [Unknown]
  - Energy increased [Unknown]
